FAERS Safety Report 26052807 (Version 1)
Quarter: 2025Q4

REPORT INFORMATION
  Report Type: Spontaneous
  Country: US (occurrence: None)
  Receive Date: 20251114
  Receipt Date: 20251114
  Transmission Date: 20260118
  Serious: Yes (Hospitalization)
  Sender: FDA-CTU
  Company Number: None

PATIENT
  Age: 79 Year
  Sex: Female
  Weight: 62.1 kg

DRUGS (10)
  1. CABOMETYX [Suspect]
     Active Substance: CABOZANTINIB S-MALATE
     Indication: Neuroendocrine tumour
     Dosage: 20 MG DAILY ORAL
     Route: 048
     Dates: start: 20250122
  2. TYLENOL WITH CODEINE [Concomitant]
     Active Substance: ACETAMINOPHEN\CODEINE PHOSPHATE
     Dates: start: 20251027
  3. CLOBETASOL [Concomitant]
     Active Substance: CLOBETASOL
     Dates: start: 20250120
  4. ELIQUIS [Concomitant]
     Active Substance: APIXABAN
     Dates: start: 20250120
  5. LEVOTHYROXINE [Concomitant]
     Active Substance: LEVOTHYROXINE
     Dates: start: 20250120
  6. HYDROCHLOROTHIAZIDE\LISINOPRIL [Concomitant]
     Active Substance: HYDROCHLOROTHIAZIDE\LISINOPRIL
     Dates: start: 20250120
  7. Prochlorperazie [Concomitant]
     Dates: start: 20250120
  8. ROSUVASTATIN [Concomitant]
     Active Substance: ROSUVASTATIN
     Dates: start: 20250120
  9. SENNA [Concomitant]
     Active Substance: SENNOSIDES
     Dates: start: 20250120
  10. VITAMIN D3 [Concomitant]
     Active Substance: CHOLECALCIFEROL
     Dates: start: 20250120

REACTIONS (2)
  - Coronary arterial stent insertion [None]
  - Stent placement [None]

NARRATIVE: CASE EVENT DATE: 20251027
